FAERS Safety Report 19022168 (Version 1)
Quarter: 2021Q1

REPORT INFORMATION
  Report Type: Report from Study
  Country: FR (occurrence: FR)
  Receive Date: 20210318
  Receipt Date: 20210318
  Transmission Date: 20210420
  Serious: Yes (Other)
  Sender: FDA-Public Use
  Company Number: FR-JNJFOC-20210321366

PATIENT

DRUGS (1)
  1. DARATUMUMAB [Suspect]
     Active Substance: DARATUMUMAB
     Indication: PLASMA CELL MYELOMA
     Route: 065

REACTIONS (6)
  - Urinary tract infection [Unknown]
  - Cytomegalovirus infection reactivation [Unknown]
  - Septic shock [Unknown]
  - Epstein-Barr virus infection reactivation [Unknown]
  - Bacteraemia [Unknown]
  - Pneumonia [Unknown]
